FAERS Safety Report 10601127 (Version 1)
Quarter: 2014Q4

REPORT INFORMATION
  Report Type: Spontaneous
  Country: US (occurrence: US)
  Receive Date: 20141124
  Receipt Date: 20141124
  Transmission Date: 20150529
  Serious: Yes (Death, Hospitalization)
  Sender: FDA-Public Use
  Company Number: US-CIPLA LTD.-2014US02032

PATIENT
  Age: 19 Year
  Sex: Male

DRUGS (2)
  1. LISINOPRIL. [Suspect]
     Active Substance: LISINOPRIL
     Dosage: 30 TABLETS
  2. AMLODIPINE [Suspect]
     Active Substance: AMLODIPINE BESYLATE
     Dosage: 700 MG (70 TABLETS OF AMLODIPINE 10MG), ONCE

REACTIONS (4)
  - Death [Fatal]
  - Suicide attempt [Unknown]
  - Overdose [Unknown]
  - Hypotension [Unknown]
